FAERS Safety Report 4903984-8 (Version None)
Quarter: 2006Q1

REPORT INFORMATION
  Report Type: 
  Country: None (occurrence: None)
  Receive Date: 20060113
  Receipt Date: 20051125
  Transmission Date: 20060701
  Serious: No
  Sender: FDA-Public Use
  Company Number: 2005SP004153

PATIENT
  Sex: Male

DRUGS (7)
  1. LUNESTA [Suspect]
     Dosage: 2 MG
     Dates: start: 20051101
  2. AVACOR [Concomitant]
  3. INDEROL [Concomitant]
  4. NIASPAN [Concomitant]
  5. ECOTRIN [Concomitant]
  6. KLONOPIN [Concomitant]
  7. SEROQUEL [Concomitant]

REACTIONS (1)
  - DYSGEUSIA [None]
